FAERS Safety Report 20583085 (Version 1)
Quarter: 2022Q1

REPORT INFORMATION
  Report Type: Spontaneous
  Country: US (occurrence: None)
  Receive Date: 20220310
  Receipt Date: 20220310
  Transmission Date: 20220424
  Serious: Yes (Hospitalization)
  Sender: FDA-Public Use
  Company Number: None

PATIENT
  Age: 51 Year
  Sex: Male

DRUGS (2)
  1. HUMIRA [Suspect]
     Active Substance: ADALIMUMAB
     Indication: Crohn^s disease
     Dosage: FREQUENCY : EVERY OTHER WEEK;?
     Route: 058
     Dates: start: 20220214
  2. HUMIRA [Concomitant]
     Active Substance: ADALIMUMAB
     Dates: start: 20220214

REACTIONS (2)
  - Gastric dilatation [None]
  - Spinal pain [None]

NARRATIVE: CASE EVENT DATE: 20220307
